FAERS Safety Report 6945380-8 (Version None)
Quarter: 2010Q3

REPORT INFORMATION
  Report Type: 
  Country: None (occurrence: None)
  Receive Date: 20100827
  Receipt Date: 20100818
  Transmission Date: 20110219
  Serious: Yes (Other)
  Sender: FDA-Public Use
  Company Number: GB-ROCHE-715380

PATIENT
  Sex: Male

DRUGS (7)
  1. AVASTIN [Suspect]
     Route: 031
  2. WARFARIN SODIUM [Concomitant]
     Indication: ATRIAL FIBRILLATION
     Dosage: DOSE ^AS PER INR^
     Dates: start: 19980101
  3. WARFARIN SODIUM [Concomitant]
     Dates: end: 20100708
  4. WARFARIN SODIUM [Concomitant]
     Dates: start: 20100709
  5. FUROSEMIDE [Concomitant]
     Indication: ESSENTIAL HYPERTENSION
     Dates: start: 20050101
  6. IRBESARTAN [Concomitant]
     Indication: ESSENTIAL HYPERTENSION
     Dates: start: 20000101
  7. CARDIOPLEN [Concomitant]
     Indication: ESSENTIAL HYPERTENSION
     Dates: start: 20040101

REACTIONS (1)
  - INTERNATIONAL NORMALISED RATIO INCREASED [None]
